FAERS Safety Report 4320871-7 (Version None)
Quarter: 2004Q1

REPORT INFORMATION
  Report Type: 
  Country: None (occurrence: None)
  Receive Date: 20040322
  Receipt Date: 20040216
  Transmission Date: 20041129
  Serious: Yes (Other)
  Sender: FDA-Public Use
  Company Number: PHHO2004CA02487

PATIENT
  Age: 64 Year
  Sex: Female

DRUGS (6)
  1. DIOVAN [Suspect]
     Dosage: NOT REPORTED
     Route: 048
     Dates: start: 20040201
  2. ZOCOR [Concomitant]
  3. METOPROLOL [Concomitant]
  4. ESTRADERM [Concomitant]
  5. ASPIRIN [Concomitant]
  6. COLACE [Concomitant]

REACTIONS (8)
  - ANXIETY [None]
  - DYSPNOEA [None]
  - FEELING HOT [None]
  - HOARSENESS [None]
  - HYPERSENSITIVITY [None]
  - HYPERTENSION [None]
  - PANIC REACTION [None]
  - RASH [None]
